FAERS Safety Report 15358580 (Version 2)
Quarter: 2018Q3

REPORT INFORMATION
  Report Type: Report from Study
  Country: US (occurrence: US)
  Receive Date: 20180906
  Receipt Date: 20180925
  Transmission Date: 20181010
  Serious: No
  Sender: FDA-Public Use
  Company Number: US-009507513-1808USA009935

PATIENT
  Sex: Female

DRUGS (3)
  1. IMPLANON [Suspect]
     Active Substance: ETONOGESTREL
     Dosage: 1 ROD OF 68 MG STRENGTH
     Route: 059
     Dates: start: 20180802
  2. INSULIN [Concomitant]
     Active Substance: INSULIN NOS
     Indication: DIABETES MELLITUS INADEQUATE CONTROL
  3. NEXPLANON [Suspect]
     Active Substance: ETONOGESTREL
     Dosage: 1 ROD OF 68 MG STRENGTH
     Route: 059
     Dates: start: 20180802

REACTIONS (6)
  - Infection [Unknown]
  - Device expulsion [Not Recovered/Not Resolved]
  - Product quality issue [Unknown]
  - Anxiety [Unknown]
  - Device difficult to use [Not Recovered/Not Resolved]
  - Medical device site discomfort [Unknown]

NARRATIVE: CASE EVENT DATE: 201808
